FAERS Safety Report 6633877-X (Version None)
Quarter: 2010Q1

REPORT INFORMATION
  Report Type: 
  Country: None (occurrence: None)
  Receive Date: 20100315
  Receipt Date: 20100310
  Transmission Date: 20100710
  Serious: Yes (Other)
  Sender: FDA-Public Use
  Company Number: US-RB-004583-10

PATIENT
  Age: 81 Year
  Sex: Male

DRUGS (1)
  1. MUCINEX DM [Suspect]
     Dosage: TOOK ONE TABLET EVERY 12 HOURS FOR 2 DAYS
     Route: 048
     Dates: start: 20100301

REACTIONS (6)
  - ABASIA [None]
  - CONFUSIONAL STATE [None]
  - DIZZINESS [None]
  - HALLUCINATION [None]
  - PNEUMONIA [None]
  - SOMNOLENCE [None]
